FAERS Safety Report 6023349-8 (Version None)
Quarter: 2008Q4

REPORT INFORMATION
  Report Type: 
  Country: None (occurrence: None)
  Receive Date: 20081223
  Receipt Date: 20081208
  Transmission Date: 20090506
  Serious: Yes (Hospitalization)
  Sender: FDA-Public Use
  Company Number: 2008S1021795

PATIENT
  Age: 22 Month
  Sex: Female

DRUGS (10)
  1. CARVEDILOL [Suspect]
     Dosage: 4.5 MG; TWICE A DAY
  2. CAPTOPRIL [Suspect]
     Dosage: 10 MG; 3 TIMES A DAY
  3. SEVOFLURANE [Suspect]
     Indication: INDUCTION OF ANAESTHESIA
  4. REMIFENTANIL (REMIFENTANIL) [Suspect]
     Indication: INDUCTION OF ANAESTHESIA
     Dosage: 1 UG/KG; INTRAVENOUS BOLUS
     Route: 040
  5. DIGOXIN [Concomitant]
  6. FUROSEMIDE [Concomitant]
  7. AMIODARONE HCL [Concomitant]
  8. MIDAZOLAM [Concomitant]
  9. PARACETAMOL [Concomitant]
  10. MIVACURIUM CHLORIDE [Concomitant]

REACTIONS (3)
  - CIRCULATORY COLLAPSE [None]
  - ELECTROMECHANICAL DISSOCIATION [None]
  - RESUSCITATION [None]
